FAERS Safety Report 15346117 (Version 2)
Quarter: 2018Q4

REPORT INFORMATION
  Report Type: Report from Study
  Country: US (occurrence: US)
  Receive Date: 20180904
  Receipt Date: 20181204
  Transmission Date: 20190204
  Serious: No
  Sender: FDA-Public Use
  Company Number: PHHY2018US088883

PATIENT
  Age: 59 Year
  Sex: Female
  Weight: 68.4 kg

DRUGS (1)
  1. COSENTYX [Suspect]
     Active Substance: SECUKINUMAB
     Indication: PSORIASIS
     Dosage: 300 MG, QMO
     Route: 058
     Dates: start: 201705

REACTIONS (2)
  - Psoriasis [Unknown]
  - Headache [Unknown]

NARRATIVE: CASE EVENT DATE: 20180606
